FAERS Safety Report 6987641-2 (Version None)
Quarter: 2010Q3

REPORT INFORMATION
  Report Type: 
  Country: None (occurrence: None)
  Receive Date: 20100914
  Receipt Date: 20100907
  Transmission Date: 20110219
  Serious: Yes (Death, Hospitalization, Other)
  Sender: FDA-Public Use
  Company Number: 018348

PATIENT
  Sex: Female
  Weight: 61 kg

DRUGS (9)
  1. CERTOLIZUMAB PEGOL (CERTOLIZUMAB PEGOL) [Suspect]
     Indication: RHEUMATOID ARTHRITIS
     Dosage: SEE IMAGE
     Route: 058
     Dates: start: 20060117, end: 20060704
  2. CERTOLIZUMAB PEGOL (CERTOLIZUMAB PEGOL) [Suspect]
     Indication: RHEUMATOID ARTHRITIS
     Dosage: SEE IMAGE
     Route: 058
     Dates: start: 20060704, end: 20071120
  3. METHOTREXATE [Concomitant]
  4. NABUMETONE [Concomitant]
  5. FOLIC ACID [Concomitant]
  6. INDAPAMIDE [Concomitant]
  7. MONONIT [Concomitant]
  8. ASPIRIN [Concomitant]
  9. BISOCARD [Concomitant]

REACTIONS (7)
  - ALANINE AMINOTRANSFERASE INCREASED [None]
  - ASPARTATE AMINOTRANSFERASE INCREASED [None]
  - BLOOD ALKALINE PHOSPHATASE INCREASED [None]
  - GAMMA-GLUTAMYLTRANSFERASE INCREASED [None]
  - HYPERTENSION [None]
  - JAUNDICE CHOLESTATIC [None]
  - PANCREATIC NEOPLASM [None]
